FAERS Safety Report 7658759-6 (Version None)
Quarter: 2011Q3

REPORT INFORMATION
  Report Type: 
  Country: None (occurrence: None)
  Receive Date: 20110805
  Receipt Date: 20110729
  Transmission Date: 20111222
  Serious: Yes (Other)
  Sender: FDA-Public Use
  Company Number: US-BAYER-2011-068792

PATIENT
  Sex: Male

DRUGS (2)
  1. STEROID ANTIBACTERIALS [Concomitant]
  2. CIPROFLOXACIN HCL [Suspect]

REACTIONS (1)
  - JOINT DESTRUCTION [None]
